FAERS Safety Report 16128312 (Version 1)
Quarter: 2019Q1

REPORT INFORMATION
  Report Type: Spontaneous
  Country: FR (occurrence: FR)
  Receive Date: 20190328
  Receipt Date: 20190328
  Transmission Date: 20190418
  Serious: Yes (Death)
  Sender: FDA-Public Use
  Company Number: FR-TEVA-2019-FR-1030482

PATIENT
  Age: 65 Year
  Sex: Female
  Weight: 83 kg

DRUGS (7)
  1. CUBICIN [Concomitant]
     Active Substance: DAPTOMYCIN
     Indication: OSTEITIS
     Dosage: 800 MILLIGRAM DAILY;
     Route: 042
     Dates: start: 20190110
  2. VANCOMYCINE [Suspect]
     Active Substance: VANCOMYCIN
     Indication: OSTEITIS
     Dosage: 1 GRAM DAILY;
     Route: 042
     Dates: start: 20181207, end: 20190110
  3. CIPROFLOXACINE [Concomitant]
     Active Substance: CIPROFLOXACIN
     Indication: OSTEITIS
     Dosage: 500 MILLIGRAM DAILY;
     Route: 042
     Dates: start: 20190106, end: 20190110
  4. MEROPENEM ANHYDRE [Concomitant]
     Active Substance: MEROPENEM
     Indication: OSTEITIS
     Dosage: 3 GRAM DAILY;
     Route: 048
     Dates: start: 20190110
  5. METRONIDAZOLE. [Concomitant]
     Active Substance: METRONIDAZOLE
     Indication: OSTEITIS
     Dosage: 750 MILLIGRAM DAILY;
     Route: 042
     Dates: start: 20190106, end: 20190110
  6. IZILOX 400 MG, COMPRIME PELLICULE [Concomitant]
     Indication: OSTEITIS
     Dosage: 400 MILLIGRAM DAILY;
     Route: 048
     Dates: start: 20190102, end: 20190106
  7. TAZOCILLINE [Suspect]
     Active Substance: PIPERACILLIN SODIUM\TAZOBACTAM SODIUM
     Indication: OSTEITIS
     Dosage: 12 GRAM DAILY;
     Route: 042
     Dates: start: 20181210, end: 20190102

REACTIONS (2)
  - Cheilitis [Fatal]
  - Drug reaction with eosinophilia and systemic symptoms [Fatal]

NARRATIVE: CASE EVENT DATE: 20190106
